FAERS Safety Report 7061634-1 (Version None)
Quarter: 2010Q4

REPORT INFORMATION
  Report Type: 
  Country: None (occurrence: None)
  Receive Date: 20101026
  Receipt Date: 20101006
  Transmission Date: 20110411
  Serious: No
  Sender: FDA-Public Use
  Company Number: US-ABBOTT-10P-163-0677205-00

PATIENT
  Sex: Female
  Weight: 48.124 kg

DRUGS (3)
  1. LUPRON DEPOT [Suspect]
     Indication: ENDOMETRIOSIS
     Dates: start: 20100801, end: 20100901
  2. NORETHINDRONE [Suspect]
     Indication: PRODUCT USED FOR UNKNOWN INDICATION
     Dates: start: 20100920, end: 20100924
  3. VENTOLYN INHALER [Concomitant]
     Indication: PRODUCT USED FOR UNKNOWN INDICATION
     Dosage: PRN

REACTIONS (4)
  - EYE SWELLING [None]
  - INSOMNIA [None]
  - IRRITABILITY [None]
  - VISUAL IMPAIRMENT [None]
